FAERS Safety Report 6902269-8 (Version None)
Quarter: 2010Q3

REPORT INFORMATION
  Report Type: 
  Country: None (occurrence: None)
  Receive Date: 20100803
  Receipt Date: 20080508
  Transmission Date: 20110219
  Serious: No
  Sender: FDA-Public Use
  Company Number: US-PFIZER INC-2008040240

PATIENT
  Sex: Female
  Weight: 56.818 kg

DRUGS (17)
  1. LYRICA [Suspect]
     Indication: FIBROMYALGIA
     Dates: start: 20080324
  2. LYRICA [Suspect]
     Indication: PAIN
  3. PERCOCET [Concomitant]
  4. AMITRIPTYLINE HYDROCHLORIDE [Concomitant]
  5. PRILOSEC [Concomitant]
  6. VALIUM [Concomitant]
  7. MONTELUKAST SODIUM [Concomitant]
  8. ADVAIR DISKUS 100/50 [Concomitant]
  9. PROVENTIL GENTLEHALER [Concomitant]
  10. IBANDRONATE SODIUM [Concomitant]
  11. UNIPHYL [Concomitant]
  12. PERI-COLACE [Concomitant]
  13. CALCIUM [Concomitant]
  14. VITAMIN TAB [Concomitant]
  15. FOLIC ACID [Concomitant]
  16. MELATONIN [Concomitant]
  17. GLUCOSAMINE [Concomitant]

REACTIONS (3)
  - EUPHORIC MOOD [None]
  - IMPAIRED DRIVING ABILITY [None]
  - OEDEMA PERIPHERAL [None]
